FAERS Safety Report 7304522-5 (Version None)
Quarter: 2011Q1

REPORT INFORMATION
  Report Type: 
  Country: None (occurrence: None)
  Receive Date: 20110221
  Receipt Date: 20110207
  Transmission Date: 20110831
  Serious: Yes (Death)
  Sender: FDA-Public Use
  Company Number: JP-AMGEN-JPNCT2010003783

PATIENT
  Age: 43 Year
  Sex: Male
  Weight: 50 kg

DRUGS (14)
  1. CORTICOSTEROIDS [Concomitant]
     Indication: PROPHYLAXIS
     Route: 065
  2. PRIMPERAN TAB [Concomitant]
     Route: 048
  3. LOXOPROFEN [Concomitant]
     Route: 048
  4. ORGARAN [Concomitant]
     Route: 042
  5. MAGLAX [Concomitant]
     Route: 048
  6. SOL-MELCORT [Concomitant]
     Route: 042
  7. PANITUMUMAB [Suspect]
     Indication: COLORECTAL CANCER
     Dosage: UNK, Q2WK
     Route: 041
     Dates: start: 20100927, end: 20100927
  8. NOVAMIN [Concomitant]
     Route: 042
  9. CALBLOCK [Concomitant]
     Route: 048
  10. NOVAMIN [Concomitant]
     Route: 048
  11. FINIBAX [Concomitant]
     Route: 042
  12. ANTIHISTAMINES [Concomitant]
     Indication: PROPHYLAXIS
     Route: 065
  13. MORPHINE DERIVATIVES AND PREPARATIONS [Concomitant]
     Route: 042
  14. RECOMODULIN [Concomitant]
     Route: 042

REACTIONS (2)
  - COLORECTAL CANCER [None]
  - HEPATIC FAILURE [None]
